FAERS Safety Report 8985842 (Version 2)
Quarter: 2013Q1

REPORT INFORMATION
  Report Type: Spontaneous
  Country: US (occurrence: US)
  Receive Date: 20121226
  Receipt Date: 20130228
  Transmission Date: 20140127
  Serious: Yes (Death, Other)
  Sender: FDA-Public Use
  Company Number: US-BAYER-2012-134773

PATIENT
  Age: 45 Year
  Sex: Male
  Weight: 172 kg

DRUGS (17)
  1. TRASYLOL [Suspect]
     Indication: CORONARY ARTERY BYPASS
     Dosage: 200ML CARDIOPULMONARY BYPASS PRIME
     Dates: start: 20070627, end: 20070627
  2. LORTAB [Concomitant]
     Dosage: 10 MG, TID
  3. LASIX [Concomitant]
     Dosage: 20 MG, QD
  4. POTASSIUM CHLORIDE [Concomitant]
     Dosage: 10 MEQ, QD
  5. AVANDIA [Concomitant]
     Dosage: 4 MG, BID
  6. METOPROLOL [Concomitant]
     Dosage: 100 MG, BID
  7. VYTORIN [Concomitant]
  8. AMLODIPINE [Concomitant]
  9. CARTIA [Concomitant]
  10. PREVACID [Concomitant]
  11. XANAX [Concomitant]
  12. HEPARIN [Concomitant]
     Dosage: UNK
     Dates: start: 20070627, end: 20070627
  13. PROTAMINE [Concomitant]
     Dosage: UNK
     Dates: start: 20070627, end: 20070627
  14. NITROGLYCERIN [Concomitant]
     Dosage: UNK
     Dates: start: 20070627
  15. INSULIN [Concomitant]
     Dosage: UNK
     Dates: start: 20070627, end: 20070627
  16. PLATELETS, HUMAN BLOOD [Concomitant]
     Dosage: UNK
     Dates: start: 20070627
  17. PLASMA [Concomitant]
     Dosage: UNK
     Dates: start: 20070627

REACTIONS (1)
  - Death [Fatal]
